FAERS Safety Report 6941239-0 (Version None)
Quarter: 2010Q3

REPORT INFORMATION
  Report Type: 
  Country: None (occurrence: None)
  Receive Date: 20100825
  Receipt Date: 20100714
  Transmission Date: 20110219
  Serious: No
  Sender: FDA-Public Use
  Company Number: US-BRISTOL-MYERS SQUIBB COMPANY-15192255

PATIENT
  Age: 66 Year
  Sex: Male

DRUGS (4)
  1. ONGLYZA [Suspect]
  2. METFORMIN HCL [Suspect]
  3. LISINOPRIL [Concomitant]
  4. LOVASTATIN [Concomitant]

REACTIONS (1)
  - BLOOD GLUCOSE INCREASED [None]
